FAERS Safety Report 4981019-9 (Version None)
Quarter: 2006Q2

REPORT INFORMATION
  Report Type: 
  Country: None (occurrence: None)
  Receive Date: 20060418
  Receipt Date: 20060403
  Transmission Date: 20061013
  Serious: Yes (Hospitalization)
  Sender: FDA-Public Use
  Company Number: US200603000797

PATIENT
  Age: 90 Year
  Sex: Female
  Weight: 54.4 kg

DRUGS (7)
  1. HUMALOG [Suspect]
     Indication: BLOOD GLUCOSE INCREASED
     Dosage: AS NEEDED,
     Dates: start: 20030101
  2. PREDNISONE TAB [Concomitant]
  3. PLAQUENIL [Concomitant]
  4. ACTONEL /USA/ (RISEDRONATE SODIUM) [Concomitant]
  5. VITAMIN D [Concomitant]
  6. CALCIUM CARBONATE (CALCIUM CARBONATE) [Concomitant]
  7. LANTUS [Concomitant]

REACTIONS (5)
  - BLOOD GLUCOSE DECREASED [None]
  - BLOOD GLUCOSE INCREASED [None]
  - CARDIAC FAILURE [None]
  - OSTEOPOROSIS [None]
  - SHOULDER PAIN [None]
